FAERS Safety Report 7224823-9 (Version None)
Quarter: 2011Q1

REPORT INFORMATION
  Report Type: 
  Country: None (occurrence: None)
  Receive Date: 20110103
  Receipt Date: 20101221
  Transmission Date: 20110831
  Serious: Yes (Hospitalization, Other)
  Sender: FDA-Public Use
  Company Number: 2010MA005503

PATIENT
  Age: 61 Year
  Sex: Male

DRUGS (3)
  1. GLIMEPIRIDE [Concomitant]
  2. IRINOTECAN HYDROCHLORIDE [Suspect]
     Indication: RECTAL CANCER
     Dosage: 290 MG; IV
     Route: 042
     Dates: start: 20100827, end: 20100924
  3. XELODA [Concomitant]

REACTIONS (9)
  - GENERAL PHYSICAL HEALTH DETERIORATION [None]
  - CHOLELITHIASIS [None]
  - HYPOTENSION [None]
  - SYNCOPE [None]
  - FALL [None]
  - HEPATOTOXICITY [None]
  - DIARRHOEA [None]
  - FLANK PAIN [None]
  - NAUSEA [None]
